FAERS Safety Report 7959144-X (Version None)
Quarter: 2011Q4

REPORT INFORMATION
  Report Type: 
  Country: None (occurrence: None)
  Receive Date: 20111206
  Receipt Date: 20111123
  Transmission Date: 20120403
  Serious: Yes (Other)
  Sender: FDA-Public Use
  Company Number: NL-ELI_LILLY_AND_COMPANY-NL201111007845

PATIENT
  Sex: Female
  Weight: 80 kg

DRUGS (3)
  1. RISPERIDONE [Concomitant]
     Indication: BIPOLAR DISORDER
     Dosage: 1 MG, QD
     Dates: start: 20080101, end: 20100201
  2. ZYPREXA [Suspect]
     Indication: PSYCHOTIC DISORDER
     Dosage: 10 MG, QD
     Dates: start: 20061208
  3. HALDOL [Concomitant]
     Dosage: 1 MG, QD
     Dates: start: 20100701

REACTIONS (2)
  - APHASIA [None]
  - DEPRESSION [None]
